FAERS Safety Report 9978303 (Version 2)
Quarter: 2014Q1

REPORT INFORMATION
  Report Type: Spontaneous
  Country: US (occurrence: US)
  Receive Date: 20140306
  Receipt Date: 20140306
  Transmission Date: 20141002
  Serious: Yes (Disabling)
  Sender: FDA-Public Use
  Company Number: US-GE HEALTHCARE MEDICAL DIAGNOSTICS-OSCN-PR-0807S-0472

PATIENT
  Age: 65 Year
  Sex: Male

DRUGS (4)
  1. OMNISCAN [Suspect]
     Indication: PRODUCT USED FOR UNKNOWN INDICATION
     Route: 042
     Dates: start: 20050310, end: 20050310
  2. OMNISCAN [Suspect]
     Route: 042
     Dates: start: 20050323, end: 20050323
  3. OMNISCAN [Suspect]
     Route: 042
     Dates: start: 20050413, end: 20050413
  4. OMNISCAN [Suspect]
     Route: 042
     Dates: start: 20050422, end: 20050422

REACTIONS (1)
  - Nephrogenic systemic fibrosis [Not Recovered/Not Resolved]
